FAERS Safety Report 12898195 (Version 1)
Quarter: 2016Q4

REPORT INFORMATION
  Report Type: Spontaneous
  Country: US (occurrence: US)
  Receive Date: 20161031
  Receipt Date: 20161031
  Transmission Date: 20170207
  Serious: Yes (Hospitalization, Other)
  Sender: FDA-Public Use
  Company Number: US-ELI_LILLY_AND_COMPANY-US201610007272

PATIENT
  Sex: Female

DRUGS (3)
  1. HUMALOG [Suspect]
     Active Substance: INSULIN LISPRO
     Indication: TYPE 2 DIABETES MELLITUS
     Dosage: UNK UNK, PRN
     Route: 065
     Dates: start: 2012
  2. HUMALOG [Suspect]
     Active Substance: INSULIN LISPRO
     Dosage: UNK UNK, PRN
     Route: 065
  3. LANTUS [Concomitant]
     Active Substance: INSULIN GLARGINE
     Dosage: UNK, UNKNOWN
     Route: 065

REACTIONS (13)
  - Myocardial infarction [Unknown]
  - Arthropathy [Unknown]
  - Limb injury [Unknown]
  - Gait disturbance [Unknown]
  - Fall [Unknown]
  - Malaise [Unknown]
  - Back disorder [Unknown]
  - Feeling of body temperature change [Unknown]
  - Limb discomfort [Unknown]
  - Respiratory disorder [Unknown]
  - Feeling abnormal [Unknown]
  - Dysgeusia [Unknown]
  - Coma [Unknown]

NARRATIVE: CASE EVENT DATE: 2012
